FAERS Safety Report 5102038-8 (Version None)
Quarter: 2006Q3

REPORT INFORMATION
  Report Type: 
  Country: None (occurrence: None)
  Receive Date: 20060907
  Receipt Date: 20060829
  Transmission Date: 20061208
  Serious: Yes (Other)
  Sender: FDA-Public Use
  Company Number: 2006104948

PATIENT
  Age: 40 Year
  Sex: Male
  Weight: 63.5036 kg

DRUGS (1)
  1. LISTERINE (MENTHOL, METHYL SALICYLATE, EUCALYPTOL, THYMOL) [Suspect]
     Indication: FEELING DRUNK
     Dosage: WHOLE BOTTLE, ORAL
     Route: 048

REACTIONS (2)
  - FEELING DRUNK [None]
  - INTENTIONAL DRUG MISUSE [None]
